FAERS Safety Report 4530199-8 (Version None)
Quarter: 2004Q4

REPORT INFORMATION
  Report Type: 
  Country: None (occurrence: None)
  Receive Date: 20041217
  Receipt Date: 20041212
  Transmission Date: 20050328
  Serious: Yes (Other)
  Sender: FDA-Public Use
  Company Number: 200422120GDDC

PATIENT
  Age: 30 Year
  Sex: Female

DRUGS (3)
  1. FLAGYL [Suspect]
     Indication: CAESAREAN SECTION
     Route: 042
     Dates: start: 20041210, end: 20041212
  2. VOREN [Concomitant]
     Indication: POSTOPERATIVE CARE
     Route: 030
     Dates: start: 20041210, end: 20041212
  3. VELOSEF INJECTION [Concomitant]
     Route: 042
     Dates: start: 20041210, end: 20041212

REACTIONS (3)
  - CHILLS [None]
  - FLUSHING [None]
  - PYREXIA [None]
